FAERS Safety Report 9169469 (Version 1)
Quarter: 2013Q1

REPORT INFORMATION
  Report Type: Spontaneous
  Country: US (occurrence: US)
  Receive Date: 20130318
  Receipt Date: 20130318
  Transmission Date: 20140127
  Serious: No
  Sender: FDA-Public Use
  Company Number: US-BAYER-2013-029592

PATIENT
  Sex: Female
  Weight: 55.33 kg

DRUGS (4)
  1. BETASERON [Suspect]
     Indication: MULTIPLE SCLEROSIS
     Dosage: UNK
     Dates: start: 20130123, end: 20130210
  2. IBUPROFEN [Concomitant]
  3. PRENATAL VITAMINS [VIT C,B5,B12,D2,B3,B6,RETINOL PALMIT,B2,B1 MONO [Concomitant]
  4. VITAMIN D3 [Concomitant]

REACTIONS (4)
  - Injection site pain [None]
  - Injection site mass [None]
  - Injection site swelling [None]
  - Injection site erythema [None]
